FAERS Safety Report 21974774 (Version 1)
Quarter: 2023Q1

REPORT INFORMATION
  Report Type: Report from Study
  Country: US (occurrence: US)
  Receive Date: 20230209
  Receipt Date: 20230209
  Transmission Date: 20230417
  Serious: Yes (Other)
  Sender: FDA-Public Use
  Company Number: US-BAUSCH-BL-2023-002302

PATIENT
  Age: 69 Year
  Sex: Male

DRUGS (35)
  1. XIFAXAN [Suspect]
     Active Substance: RIFAXIMIN
     Indication: Product used for unknown indication
     Dosage: 1 MG  TABLET (ORAL) DAILY FOR 30 DAYS (LOCAL PRESCRIPTION)
     Route: 048
     Dates: start: 20211231
  2. SPIRONOLACTONE [Concomitant]
     Active Substance: SPIRONOLACTONE
     Indication: Product used for unknown indication
     Dosage: 1 (ONE) TABLET (ORAL) DAILY FOR 30 DAYS (LOCAL PRESCRIPTION). PRESCRIBED ON 04/JAN/2023.
     Route: 048
  3. FERROUS SULFATE [Concomitant]
     Active Substance: FERROUS SULFATE
     Indication: Product used for unknown indication
     Dosage: 325 (65 FE) MG TABLET. 1 (ONE) TABLET (ORAL) DAILY. PRESCRIBED ON 11/AUG/2022
     Route: 048
  4. LEVOTHYROXINE SODIUM [Concomitant]
     Active Substance: LEVOTHYROXINE SODIUM
     Indication: Product used for unknown indication
     Dosage: 1 (ONE) TABLET (ORAL) DAILY.
     Route: 048
     Dates: start: 20220929
  5. LEVOTHYROXINE SODIUM [Concomitant]
     Active Substance: LEVOTHYROXINE SODIUM
     Dosage: 1 (ONE) TABLET (ORAL) DAILY
     Route: 048
     Dates: start: 20220811
  6. BUPRENORPHINE HYDROCHLORIDE\NALOXONE HYDROCHLORIDE [Concomitant]
     Active Substance: BUPRENORPHINE HYDROCHLORIDE\NALOXONE HYDROCHLORIDE
     Indication: Product used for unknown indication
     Dosage: 8-2 MG (SUBLINGUS) BY 2 TIMES DAILY
     Route: 060
  7. VITAMINS [Concomitant]
     Active Substance: VITAMINS
     Indication: Product used for unknown indication
     Dosage: 1 (ONE) TABLET (ORAL) DAILY
     Route: 048
  8. MELATONIN [Concomitant]
     Active Substance: MELATONIN
     Indication: Product used for unknown indication
     Dosage: 5 MG  (ORAL)
     Route: 048
     Dates: start: 20210627
  9. MELATONIN [Concomitant]
     Active Substance: MELATONIN
     Route: 048
     Dates: start: 20221011
  10. MELATONIN [Concomitant]
     Active Substance: MELATONIN
     Dosage: 10 MG  (ORAL) 90 3 REFILLS ER
     Route: 048
     Dates: start: 20190301
  11. MELATONIN [Concomitant]
     Active Substance: MELATONIN
     Route: 048
     Dates: start: 20221128
  12. ATROPINE\DIPHENOXYLATE [Concomitant]
     Active Substance: ATROPINE\DIPHENOXYLATE
     Indication: Product used for unknown indication
     Dosage: 2.5-0.25MG (ORAL) FOUR TIMES DAILY
     Route: 048
     Dates: start: 20211010
  13. ACETAMINOPHEN [Concomitant]
     Active Substance: ACETAMINOPHEN
     Indication: Product used for unknown indication
     Dosage: 500 MG (ORAL) EVERY SIX HOURS
     Route: 048
     Dates: start: 20221010
  14. ACETAMINOPHEN [Concomitant]
     Active Substance: ACETAMINOPHEN
     Dosage: 650 MG (ORAL) EVERY SIX HOURS AS NEEDED
     Route: 048
     Dates: start: 20221010
  15. CLONIDINE HYDROCHLORIDE [Concomitant]
     Active Substance: CLONIDINE HYDROCHLORIDE
     Indication: Product used for unknown indication
     Dosage: 0.1 MG (ORAL) FOUR TIMES DAILY
     Route: 048
     Dates: start: 20211010
  16. METHYL SALICYLATE [Concomitant]
     Active Substance: METHYL SALICYLATE
     Indication: Product used for unknown indication
     Dosage: 4-10 30 % CREAM EXTERNAL
     Dates: start: 20221011
  17. ASPERCREME WITH LIDOCAINE [Concomitant]
     Active Substance: LIDOCAINE
     Indication: Product used for unknown indication
     Dosage: 4 % ADHESIVE PATCH  EXTERNAL. 1 PATCH DAILY
     Route: 061
     Dates: start: 20221012
  18. BISACODYL [Concomitant]
     Active Substance: BISACODYL
     Indication: Product used for unknown indication
     Dosage: LAXATIVE EVERY 24 HRS
     Route: 054
     Dates: start: 20221024
  19. PROCHLORPERAZINE EDISYLATE [Concomitant]
     Active Substance: PROCHLORPERAZINE EDISYLATE
     Indication: Product used for unknown indication
     Dosage: 5MG/ML VIAL SIX HRS
     Route: 048
     Dates: start: 20221024
  20. METHOCARBAMOL [Concomitant]
     Active Substance: METHOCARBAMOL
     Indication: Product used for unknown indication
     Dosage: 500 MG (ORAL) EVERY SIX HOURS
     Route: 048
     Dates: start: 20221024
  21. DOCUSATE SODIUM\SENNOSIDES [Concomitant]
     Active Substance: DOCUSATE SODIUM\SENNOSIDES
     Indication: Product used for unknown indication
     Dosage: 8.6-50MG TABLET  QTY: 180; REFILLS: 3  (ORAL) TWO TIMES DAILY
     Route: 048
     Dates: start: 20221101
  22. DOCUSATE SODIUM\SENNOSIDES [Concomitant]
     Active Substance: DOCUSATE SODIUM\SENNOSIDES
     Dosage: 8.6-50MG TABLET  QTY: 180; REFILLS: 3  (ORAL) TWO TIMES DAILY
     Route: 048
     Dates: start: 20221025
  23. TAMSULOSIN HYDROCHLORIDE [Concomitant]
     Active Substance: TAMSULOSIN HYDROCHLORIDE
     Indication: Product used for unknown indication
     Dosage: 0.4 MG TABLET  QTY: 30; (ORAL)
     Route: 048
     Dates: start: 20221101
  24. TAMSULOSIN HYDROCHLORIDE [Concomitant]
     Active Substance: TAMSULOSIN HYDROCHLORIDE
     Dosage: 0.4 MG TABLET  QTY: 30; (ORAL)
     Route: 048
     Dates: start: 20221026
  25. AMOXICILLIN\CLAVULANATE POTASSIUM [Concomitant]
     Active Substance: AMOXICILLIN\CLAVULANATE POTASSIUM
     Indication: Product used for unknown indication
     Dosage: 875- 125 MG TABLET  QTY: 60 (ORAL) TWO TIMES DAILY
     Route: 048
     Dates: start: 20221101
  26. AMOXICILLIN\CLAVULANATE POTASSIUM [Concomitant]
     Active Substance: AMOXICILLIN\CLAVULANATE POTASSIUM
     Dosage: 875- 125 MG TABLET  QTY: 60 (ORAL) TWO TIMES DAILY
     Route: 048
     Dates: start: 20221027
  27. LANSOPRAZOLE [Concomitant]
     Active Substance: LANSOPRAZOLE
     Indication: Product used for unknown indication
     Dosage: CAPSULE,DELAYED RELEASE (ENTERIC COATED)  1 CAP (ORAL) TWO TIMES DAILY FOR 90 DAYS
     Route: 048
     Dates: start: 20221101
  28. CALCIUM CARBONATE [Concomitant]
     Active Substance: CALCIUM CARBONATE
     Indication: Product used for unknown indication
     Dosage: 1 TAB (ORAL) FOUR TIMES DAILY
     Route: 048
     Dates: start: 20221027
  29. CALCIUM CARBONATE [Concomitant]
     Active Substance: CALCIUM CARBONATE
     Dosage: 1 TAB (ORAL) FOUR TIMES DAILY
     Route: 048
     Dates: start: 20221101
  30. FOLIC ACID [Concomitant]
     Active Substance: FOLIC ACID
     Indication: Product used for unknown indication
     Dosage: 1 MG  TABLET (ORAL) DAILY. PRESCRIBE DATE: 11/AUG/2022.
     Route: 048
  31. SERTRALINE HYDROCHLORIDE [Concomitant]
     Active Substance: SERTRALINE HYDROCHLORIDE
     Indication: Product used for unknown indication
     Dosage: 50 MG  TABLET (ORAL) DAILY FOR 30 DAYS (LOCAL PRESCRIPTION)
     Route: 048
     Dates: start: 20220630
  32. SERTRALINE HYDROCHLORIDE [Concomitant]
     Active Substance: SERTRALINE HYDROCHLORIDE
     Dosage: 50 MG  TABLET (ORAL) DAILY FOR 30 DAYS (LOCAL PRESCRIPTION)
     Route: 048
     Dates: start: 20221108
  33. ONDANSETRON HCL [Concomitant]
     Active Substance: ONDANSETRON HYDROCHLORIDE
     Indication: Product used for unknown indication
     Dosage: QTY :30 REFILLS 1
     Route: 048
     Dates: start: 20221229
  34. SULFAMETHOXAZOLE\TRIMETHOPRIM [Concomitant]
     Active Substance: SULFAMETHOXAZOLE\TRIMETHOPRIM
     Indication: Product used for unknown indication
     Dosage: 800-100 MCG TABLET (ORAL) DAILY FOR 30 DAYS (LOCAL PRESCRIPTION)
     Route: 048
     Dates: start: 20220117
  35. LACTULOSE [Concomitant]
     Active Substance: LACTULOSE
     Indication: Product used for unknown indication
     Dosage: LACTULOSE ENCEPHALOPATHY. 10GM/15ML SOL (ORAL 2 TIMES DAILY) FOR 30 DAYS (LOCAL PRESCRIPTION)
     Route: 048
     Dates: start: 20220117

REACTIONS (23)
  - Rib fracture [Unknown]
  - Lumbar vertebral fracture [Unknown]
  - Acute kidney injury [Unknown]
  - Acetabulum fracture [Unknown]
  - Small intestinal obstruction [Unknown]
  - Hepatic cirrhosis [Unknown]
  - Gastrointestinal haemorrhage [Unknown]
  - Supraventricular tachycardia [Unknown]
  - Aortic dissection [Unknown]
  - Humerus fracture [Unknown]
  - Ascites [Unknown]
  - Malnutrition [Unknown]
  - Skin ulcer [Unknown]
  - Hypervolaemia [Unknown]
  - Drug withdrawal syndrome [Unknown]
  - Hypoalbuminaemia [Unknown]
  - Orthostatic hypotension [Unknown]
  - Mobility decreased [Unknown]
  - Jaw disorder [Unknown]
  - Pleural effusion [Unknown]
  - Fall [Unknown]
  - Depression [Unknown]
  - Asthenia [Unknown]

NARRATIVE: CASE EVENT DATE: 20220210
